FAERS Safety Report 11743994 (Version 1)
Quarter: 2015Q4

REPORT INFORMATION
  Report Type: Spontaneous
  Country: US (occurrence: US)
  Receive Date: 20151116
  Receipt Date: 20151116
  Transmission Date: 20160304
  Serious: No
  Sender: FDA-Public Use
  Company Number: US-BAYER-2015-463898

PATIENT
  Sex: Male
  Weight: 65.76 kg

DRUGS (1)
  1. MIRALAX [Suspect]
     Active Substance: POLYETHYLENE GLYCOL 3350
     Dosage: 1 DF, UNK
     Route: 048
     Dates: start: 201507

REACTIONS (7)
  - Wrong technique in product usage process [Not Recovered/Not Resolved]
  - Product use issue [Not Recovered/Not Resolved]
  - Fatigue [None]
  - Product use issue [Not Recovered/Not Resolved]
  - Product use issue [None]
  - Nausea [None]
  - Dry mouth [Recovered/Resolved]

NARRATIVE: CASE EVENT DATE: 201507
